FAERS Safety Report 4640699-8 (Version None)
Quarter: 2005Q2

REPORT INFORMATION
  Report Type: 
  Country: None (occurrence: None)
  Receive Date: 20050419
  Receipt Date: 20050404
  Transmission Date: 20051028
  Serious: Yes (Hospitalization)
  Sender: FDA-Public Use
  Company Number: 213811

PATIENT
  Age: 32 Year
  Sex: Female

DRUGS (5)
  1. XOLAIR [Suspect]
     Indication: ASTHMA
     Dosage: 375 MG, 2/WEEK, SUBCUTANEOUS
     Route: 058
  2. GLUCOPHAGE [Concomitant]
  3. LOSARTAN (LOSARTAN POTASSIUM) [Concomitant]
  4. INHALED CORTICOSTEROID (CORTICOSTEROID NOS) [Concomitant]
  5. PREDNISONE [Concomitant]

REACTIONS (2)
  - ASTHMA [None]
  - SINUSITIS [None]
